FAERS Safety Report 9291184 (Version 1)
Quarter: 2012Q4

REPORT INFORMATION
  Report Type: Spontaneous
  Country: GB (occurrence: None)
  Receive Date: 20121127
  Receipt Date: 20121127
  Transmission Date: 20130627
  Serious: Yes (Other)
  Sender: FDA-Public Use
  Company Number: 2012-19646

PATIENT
  Sex: Female

DRUGS (1)
  1. FLUOXETINE HYDROCHLORIDE (UNKNOWN)(FLUOXETINE HYDROCHLORIDE) LINK, UNKUNK [Suspect]
     Indication: DEPRESSION
     Dosage: Tablet

REACTIONS (14)
  - Memory impairment [None]
  - Influenza like illness [None]
  - Arthralgia [None]
  - Fatigue [None]
  - Back pain [None]
  - Arthralgia [None]
  - Malaise [None]
  - Self injurious behaviour [None]
  - Alcohol intolerance [None]
  - Urinary tract infection [None]
  - Condition aggravated [None]
  - Drug ineffective [None]
  - Legal problem [None]
  - Personality change [None]
